FAERS Safety Report 9521958 (Version 1)
Quarter: 2013Q3

REPORT INFORMATION
  Report Type: Report from Study
  Country: US (occurrence: US)
  Receive Date: 20130913
  Receipt Date: 20130913
  Transmission Date: 20140515
  Serious: Yes (Hospitalization)
  Sender: FDA-Public Use
  Company Number: US-ABBOTT-13P-163-1144454-00

PATIENT
  Age: 67 Year
  Sex: Female

DRUGS (11)
  1. HUMIRA [Suspect]
     Indication: CROHN^S DISEASE
  2. PREDNISONE [Suspect]
     Indication: PRODUCT USED FOR UNKNOWN INDICATION
     Dates: start: 20130815, end: 20130905
  3. PREDNISONE [Suspect]
     Dates: start: 20130905
  4. BYSTOLIC [Concomitant]
     Indication: HYPERTENSION
     Dosage: 1/2 TABLET DAILY
  5. PREMARIN [Concomitant]
     Indication: PRODUCT USED FOR UNKNOWN INDICATION
     Dosage: MONDAY THROUGH THURSDAY
  6. BENADRYL [Concomitant]
     Indication: INSOMNIA
     Dosage: EVERY NIGHT
  7. ATIVAN [Concomitant]
     Indication: ANXIETY
  8. MAGNESIUM [Concomitant]
     Indication: PRODUCT USED FOR UNKNOWN INDICATION
  9. VIT D3 [Concomitant]
     Dosage: DAILY
  10. PROTONIX [Concomitant]
     Indication: PRODUCT USED FOR UNKNOWN INDICATION
  11. LEVSIN [Concomitant]
     Indication: MUSCLE SPASMS

REACTIONS (7)
  - Small intestinal stenosis [Not Recovered/Not Resolved]
  - Vomiting [Unknown]
  - Pain [Unknown]
  - Drug ineffective [Not Recovered/Not Resolved]
  - Feeling jittery [Not Recovered/Not Resolved]
  - Feeling abnormal [Not Recovered/Not Resolved]
  - Feeling jittery [Not Recovered/Not Resolved]
